FAERS Safety Report 5024197-8 (Version None)
Quarter: 2006Q2

REPORT INFORMATION
  Report Type: 
  Country: None (occurrence: None)
  Receive Date: 20060428
  Receipt Date: 20050401
  Transmission Date: 20061013
  Serious: Yes (Hospitalization)
  Sender: FDA-Public Use
  Company Number: 2005P1000206

PATIENT
  Age: 28 Year
  Sex: Male

DRUGS (13)
  1. BUSULFAN (BUSULFAN) [Suspect]
     Indication: BONE MARROW CONDITIONING REGIMEN
     Dosage: 236 MG; QD
     Dates: start: 20050529, end: 20050601
  2. MESNA [Concomitant]
  3. CYCLOPHOSPHAMIDE [Concomitant]
  4. PHENYTOIN [Concomitant]
  5. ZOFRAN [Concomitant]
  6. VANCOMYCIN [Concomitant]
  7. MEROPENEM [Concomitant]
  8. CEFTAZIDIME [Concomitant]
  9. CIPROFLOXACIN HCL [Concomitant]
  10. AMPHOTERICIN B [Concomitant]
  11. DIFLUCAN [Concomitant]
  12. HEPARIN [Concomitant]
  13. GRASIN [Concomitant]

REACTIONS (1)
  - GRAFT VERSUS HOST DISEASE [None]
